FAERS Safety Report 10558044 (Version 1)
Quarter: 2014Q4

REPORT INFORMATION
  Report Type: Spontaneous
  Country: US (occurrence: None)
  Receive Date: 20141030
  Receipt Date: 20141030
  Transmission Date: 20150529
  Serious: Yes (Hospitalization)
  Sender: FDA-Public Use
  Company Number: None

PATIENT
  Age: 45 Year
  Sex: Male
  Weight: 47.7 kg

DRUGS (2)
  1. MORPHINE [Suspect]
     Active Substance: MORPHINE
     Indication: PAIN
     Route: 048
     Dates: start: 20140827, end: 20140926
  2. OXYCODONE [Suspect]
     Active Substance: OXYCODONE
     Indication: PAIN
     Route: 048
     Dates: start: 20140905, end: 20141005

REACTIONS (6)
  - Tachycardia [None]
  - Hypopnoea [None]
  - Unresponsive to stimuli [None]
  - Somnolence [None]
  - Respiratory depression [None]
  - Overdose [None]

NARRATIVE: CASE EVENT DATE: 20141008
